FAERS Safety Report 20506731 (Version 1)
Quarter: 2022Q1

REPORT INFORMATION
  Report Type: Spontaneous
  Country: US (occurrence: None)
  Receive Date: 20220222
  Receipt Date: 20220222
  Transmission Date: 20220423
  Serious: Yes (Other)
  Sender: FDA-Public Use
  Company Number: None

PATIENT
  Age: 65 Year
  Sex: Female
  Weight: 90 kg

DRUGS (3)
  1. SUTAB [Suspect]
     Active Substance: MAGNESIUM SULFATE\POTASSIUM CHLORIDE\SODIUM SULFATE
     Indication: Colonoscopy
     Dosage: FREQUENCY : AS NEEDED;?
     Route: 048
     Dates: start: 20220217, end: 20220217
  2. Eliquis 2.5 mg twice A-day [Concomitant]
  3. fiber gummy once A-day [Concomitant]

REACTIONS (5)
  - Contrast media reaction [None]
  - Vomiting projectile [None]
  - Chills [None]
  - Tremor [None]
  - Tooth disorder [None]

NARRATIVE: CASE EVENT DATE: 20220217
